FAERS Safety Report 21876938 (Version 1)
Quarter: 2023Q1

REPORT INFORMATION
  Report Type: Spontaneous
  Country: US (occurrence: US)
  Receive Date: 20230118
  Receipt Date: 20230118
  Transmission Date: 20230418
  Serious: No
  Sender: FDA-Public Use
  Company Number: US-LEO Pharma-348453

PATIENT
  Sex: Female

DRUGS (3)
  1. Clobetasol? [Concomitant]
     Indication: Product used for unknown indication
  2. ADBRY [Suspect]
     Active Substance: TRALOKINUMAB-LDRM
     Indication: Dermatitis atopic
     Dosage: DOSAGE : 2 SYRINGES (300 MG) UNDER THE SKIN EVERY TWO WEEKS
     Route: 058
     Dates: start: 20221213
  3. ADVIL [Concomitant]
     Active Substance: IBUPROFEN
     Indication: Product used for unknown indication
     Dosage: DOSAGE : 200 MG CAPSULE

REACTIONS (1)
  - COVID-19 [Unknown]
